FAERS Safety Report 5096945-2 (Version None)
Quarter: 2006Q3

REPORT INFORMATION
  Report Type: 
  Country: None (occurrence: None)
  Receive Date: 20060831
  Receipt Date: 20060821
  Transmission Date: 20061208
  Serious: Yes (Hospitalization, Other)
  Sender: FDA-Public Use
  Company Number: 2006AL002394

PATIENT
  Age: 62 Year
  Sex: Female

DRUGS (2)
  1. SULFATRIM PEDIATRIC [Suspect]
     Dates: start: 20060810, end: 20060815
  2. PRESERVISION AREDS SOFT GELS [Concomitant]

REACTIONS (2)
  - BLOOD PRESSURE SYSTOLIC INCREASED [None]
  - HEADACHE [None]
